FAERS Safety Report 7025222-5 (Version None)
Quarter: 2010Q4

REPORT INFORMATION
  Report Type: 
  Country: None (occurrence: None)
  Receive Date: 20101001
  Receipt Date: 20100923
  Transmission Date: 20110411
  Serious: Yes (Death, Hospitalization, Other)
  Sender: FDA-Public Use
  Company Number: US-GENZYME-CLOF-1000943

PATIENT
  Sex: Female
  Weight: 63.2 kg

DRUGS (4)
  1. CLOLAR [Suspect]
     Indication: ACUTE MYELOID LEUKAEMIA
     Dosage: 2 MG, QD
     Route: 048
     Dates: start: 20100407, end: 20100421
  2. IMODIUM [Concomitant]
     Indication: COLITIS
     Dosage: UNK UNK, UNK
     Route: 065
  3. LEVAQUIN [Concomitant]
     Indication: PROPHYLAXIS
     Dosage: UNK UNK, UNK
     Route: 065
     Dates: start: 20100421
  4. LEVAQUIN [Concomitant]
     Indication: LOCALISED INFECTION

REACTIONS (12)
  - ANAEMIA [None]
  - BACTERAEMIA [None]
  - CONFUSIONAL STATE [None]
  - DISEASE PROGRESSION [None]
  - FEBRILE NEUTROPENIA [None]
  - HYPOXIA [None]
  - MYOCARDIAL ISCHAEMIA [None]
  - NAUSEA [None]
  - NEUTROPENIA [None]
  - NIGHT SWEATS [None]
  - THROMBOCYTOPENIA [None]
  - TROPONIN [None]
